FAERS Safety Report 8134374-5 (Version None)
Quarter: 2012Q1

REPORT INFORMATION
  Report Type: 
  Country: None (occurrence: None)
  Receive Date: 20120103
  Receipt Date: 20111108
  Transmission Date: 20120608
  Serious: No
  Sender: FDA-Public Use
  Company Number: AE-2011-003249

PATIENT
  Age: 59 Year
  Sex: Male
  Weight: 65.7716 kg

DRUGS (8)
  1. SPIRONOLACTONE [Concomitant]
  2. FUROSEMIDE [Concomitant]
  3. INCIVEK [Suspect]
     Dosage: 2250 MG (750 MG, 1 IN 8 HR), ORAL
     Route: 048
     Dates: start: 20111016
  4. PEGINTERFERON (PEGINTERFERON ALFA-2A) [Concomitant]
  5. RIBAVIRIN [Concomitant]
  6. TRIAMCINOLONE [Concomitant]
  7. TRAMADOL HCL [Concomitant]
  8. SULFA METH (BACTRIM) [Concomitant]

REACTIONS (3)
  - INSOMNIA [None]
  - RASH GENERALISED [None]
  - PRURITUS [None]
